FAERS Safety Report 9657792 (Version 1)
Quarter: 2013Q4

REPORT INFORMATION
  Report Type: Spontaneous
  Country: GB (occurrence: GB)
  Receive Date: 20131030
  Receipt Date: 20131030
  Transmission Date: 20140711
  Serious: Yes (Life-Threatening, Hospitalization)
  Sender: FDA-Public Use
  Company Number: GB-BAYER-2013-132555

PATIENT
  Age: 12 Year
  Sex: Female
  Weight: 54.88 kg

DRUGS (3)
  1. ACETYLSALICYLIC ACID (} 100 MG) [Suspect]
     Indication: PAIN
     Dosage: UNK
     Dates: start: 201211
  2. BRUFEN [Concomitant]
  3. PARACETAMOL [Concomitant]

REACTIONS (1)
  - Anaphylactic reaction [Recovered/Resolved]
